FAERS Safety Report 10025930 (Version 1)
Quarter: 2014Q1

REPORT INFORMATION
  Report Type: Spontaneous
  Country: IL (occurrence: IL)
  Receive Date: 20140320
  Receipt Date: 20140320
  Transmission Date: 20141002
  Serious: Yes (Death)
  Sender: FDA-Public Use
  Company Number: IL-JNJFOC-20140311590

PATIENT
  Sex: Male

DRUGS (1)
  1. IBRUTINIB [Suspect]
     Indication: RICHTER^S SYNDROME
     Route: 048

REACTIONS (1)
  - Death [Fatal]
